FAERS Safety Report 11323964 (Version 4)
Quarter: 2015Q3

REPORT INFORMATION
  Report Type: Report from Study
  Country: EG (occurrence: EG)
  Receive Date: 20150730
  Receipt Date: 20150904
  Transmission Date: 20151125
  Serious: Yes (Death)
  Sender: FDA-Public Use
  Company Number: EG-B.I. PHARMACEUTICALS,INC./RIDGEFIELD-2015-BI-38043BI

PATIENT
  Age: 36 Year
  Sex: Male
  Weight: 64 kg

DRUGS (4)
  1. ALPHA CHYMOTRYPSIN [Concomitant]
     Indication: NECK MASS
  2. ALPHA CHYMOTRYPSIN [Concomitant]
     Indication: LOCALISED OEDEMA
     Route: 030
     Dates: start: 20150215, end: 20150712
  3. BIBW 2992 [Suspect]
     Active Substance: AFATINIB
     Indication: SQUAMOUS CELL CARCINOMA OF HEAD AND NECK
     Dosage: 40 MG
     Route: 050
     Dates: start: 20150702, end: 20150712
  4. VOLTAREN [Concomitant]
     Active Substance: DICLOFENAC SODIUM
     Indication: ORAL PAIN
     Dosage: STRENGTH:50MG
     Route: 030
     Dates: start: 201412, end: 20150712

REACTIONS (2)
  - Hypoglycaemia [Fatal]
  - Decreased appetite [Unknown]

NARRATIVE: CASE EVENT DATE: 20150709
